FAERS Safety Report 20410636 (Version 3)
Quarter: 2022Q3

REPORT INFORMATION
  Report Type: Spontaneous
  Country: CA (occurrence: CA)
  Receive Date: 20220201
  Receipt Date: 20220812
  Transmission Date: 20221027
  Serious: Yes (Disabling, Other)
  Sender: FDA-Public Use
  Company Number: CA-SA-SAC20220120001250

PATIENT
  Age: 44 Year
  Sex: Female
  Weight: 97 kg

DRUGS (103)
  1. DESOXIMETASONE [Suspect]
     Active Substance: DESOXIMETASONE
     Indication: Rheumatoid arthritis
     Route: 061
  2. DESOXIMETASONE [Suspect]
     Active Substance: DESOXIMETASONE
     Dosage: UNK
     Route: 003
  3. DESOXIMETASONE [Suspect]
     Active Substance: DESOXIMETASONE
     Dosage: UNK
     Route: 048
  4. DESOXIMETASONE [Suspect]
     Active Substance: DESOXIMETASONE
     Dosage: UNK
     Route: 003
  5. DESOXIMETASONE [Suspect]
     Active Substance: DESOXIMETASONE
     Dosage: UNK
     Route: 061
  6. DESOXIMETASONE [Suspect]
     Active Substance: DESOXIMETASONE
     Route: 003
  7. DESOXIMETASONE [Suspect]
     Active Substance: DESOXIMETASONE
     Route: 061
  8. DICLOFENAC [Suspect]
     Active Substance: DICLOFENAC
     Dosage: UNK
  9. TOPICORT [Suspect]
     Active Substance: DESOXIMETASONE
     Indication: Product used for unknown indication
  10. TOPICORT [Suspect]
     Active Substance: DESOXIMETASONE
  11. ALENDRONIC ACID [Suspect]
     Active Substance: ALENDRONIC ACID
     Indication: Rheumatoid arthritis
     Dosage: 5 MG, Q12H
     Route: 048
  12. ALENDRONIC ACID [Suspect]
     Active Substance: ALENDRONIC ACID
     Dosage: UNK
     Route: 065
  13. ALENDRONIC ACID [Suspect]
     Active Substance: ALENDRONIC ACID
  14. ALENDRONIC ACID [Suspect]
     Active Substance: ALENDRONIC ACID
     Route: 048
  15. ARAVA [Suspect]
     Active Substance: LEFLUNOMIDE
     Indication: Rheumatoid arthritis
     Route: 048
  16. ARAVA [Suspect]
     Active Substance: LEFLUNOMIDE
     Route: 048
  17. CHLORHEXIDINE [Suspect]
     Active Substance: CHLORHEXIDINE
     Indication: Product used for unknown indication
     Route: 048
  18. CHLORHEXIDINE [Suspect]
     Active Substance: CHLORHEXIDINE
     Route: 048
  19. CORTISONE ACETATE [Suspect]
     Active Substance: CORTISONE ACETATE
     Indication: Rheumatoid arthritis
     Dosage: 25 MG
     Route: 061
  20. CORTISONE ACETATE [Suspect]
     Active Substance: CORTISONE ACETATE
     Route: 061
  21. FOLIC ACID [Suspect]
     Active Substance: FOLIC ACID
     Indication: Rheumatoid arthritis
     Dosage: 1 MG
  22. FOLIC ACID [Suspect]
     Active Substance: FOLIC ACID
     Dosage: 5 UNK
  23. FOLIC ACID [Suspect]
     Active Substance: FOLIC ACID
  24. FOLIC ACID [Suspect]
     Active Substance: FOLIC ACID
  25. ALENDRONATE SODIUM [Suspect]
     Active Substance: ALENDRONATE SODIUM
     Indication: Rheumatoid arthritis
     Route: 048
  26. ALENDRONATE SODIUM [Suspect]
     Active Substance: ALENDRONATE SODIUM
     Route: 048
  27. HYDROXYCHLOROQUINE SULFATE [Suspect]
     Active Substance: HYDROXYCHLOROQUINE SULFATE
     Indication: Rheumatoid arthritis
     Dosage: 400 MG, QD
     Route: 048
  28. HYDROXYCHLOROQUINE SULFATE [Suspect]
     Active Substance: HYDROXYCHLOROQUINE SULFATE
     Route: 048
  29. LEFLUNOMIDE [Suspect]
     Active Substance: LEFLUNOMIDE
     Indication: Product used for unknown indication
     Dosage: UNK
  30. LEFLUNOMIDE [Suspect]
     Active Substance: LEFLUNOMIDE
  31. METHOTREXATE [Suspect]
     Active Substance: METHOTREXATE
     Indication: Product used for unknown indication
     Dosage: 20 MG, QD
     Route: 048
  32. METHOTREXATE [Suspect]
     Active Substance: METHOTREXATE
     Dosage: 25 MG
     Route: 048
  33. METHOTREXATE [Suspect]
     Active Substance: METHOTREXATE
     Route: 048
  34. METHOTREXATE [Suspect]
     Active Substance: METHOTREXATE
     Route: 048
  35. OXYCODONE HYDROCHLORIDE [Suspect]
     Active Substance: OXYCODONE HYDROCHLORIDE
     Indication: Product used for unknown indication
  36. OXYCODONE HYDROCHLORIDE [Suspect]
     Active Substance: OXYCODONE HYDROCHLORIDE
  37. CHLORHEXIDINE GLUCONATE [Suspect]
     Active Substance: CHLORHEXIDINE GLUCONATE
     Indication: Product used for unknown indication
     Dosage: UNK
     Route: 002
  38. CHLORHEXIDINE GLUCONATE [Suspect]
     Active Substance: CHLORHEXIDINE GLUCONATE
     Dosage: UNK
     Route: 061
  39. CHLORHEXIDINE GLUCONATE [Suspect]
     Active Substance: CHLORHEXIDINE GLUCONATE
     Route: 002
  40. CETIRIZINE HYDROCHLORIDE [Suspect]
     Active Substance: CETIRIZINE HYDROCHLORIDE
     Indication: Rheumatoid arthritis
  41. CETIRIZINE HYDROCHLORIDE [Suspect]
     Active Substance: CETIRIZINE HYDROCHLORIDE
     Dosage: UNK
     Route: 005
  42. CETIRIZINE HYDROCHLORIDE [Suspect]
     Active Substance: CETIRIZINE HYDROCHLORIDE
  43. PREDNISONE [Suspect]
     Active Substance: PREDNISONE
     Indication: Rheumatoid arthritis
     Route: 048
  44. PREDNISONE [Suspect]
     Active Substance: PREDNISONE
     Route: 048
  45. PLAQUENIL [Suspect]
     Active Substance: HYDROXYCHLOROQUINE SULFATE
     Indication: Rheumatoid arthritis
     Dosage: 400 MG, QD
  46. PLAQUENIL [Suspect]
     Active Substance: HYDROXYCHLOROQUINE SULFATE
  47. CODEINE SULFATE [Suspect]
     Active Substance: CODEINE SULFATE
     Indication: Product used for unknown indication
  48. ACETAMINOPHEN [Suspect]
     Active Substance: ACETAMINOPHEN
     Indication: Product used for unknown indication
  49. SULFASALAZINE [Suspect]
     Active Substance: SULFASALAZINE
     Indication: Rheumatoid arthritis
     Route: 048
  50. SULFASALAZINE [Suspect]
     Active Substance: SULFASALAZINE
     Dosage: 500 MG
     Route: 048
  51. SULFASALAZINE [Suspect]
     Active Substance: SULFASALAZINE
     Dosage: 1000 MG, Q12H
     Route: 048
  52. SULFASALAZINE [Suspect]
     Active Substance: SULFASALAZINE
     Route: 048
  53. SULFASALAZINE [Suspect]
     Active Substance: SULFASALAZINE
     Route: 048
  54. SULFASALAZINE [Suspect]
     Active Substance: SULFASALAZINE
     Route: 048
  55. CETIRIZINE [Suspect]
     Active Substance: CETIRIZINE HYDROCHLORIDE
     Indication: Product used for unknown indication
     Dosage: 10 MG
  56. PSEUDOEPHEDRINE [Suspect]
     Active Substance: PSEUDOEPHEDRINE
     Indication: Product used for unknown indication
  57. PSEUDOEPHEDRINE [Suspect]
     Active Substance: PSEUDOEPHEDRINE
  58. HUMIRA [Suspect]
     Active Substance: ADALIMUMAB
     Indication: Product used for unknown indication
     Dosage: 40 MG
     Route: 058
  59. HUMIRA [Suspect]
     Active Substance: ADALIMUMAB
     Route: 058
  60. CIMZIA [Suspect]
     Active Substance: CERTOLIZUMAB PEGOL
     Indication: Rheumatoid arthritis
     Route: 058
  61. CIMZIA [Suspect]
     Active Substance: CERTOLIZUMAB PEGOL
     Route: 058
  62. ENBREL [Suspect]
     Active Substance: ETANERCEPT
     Indication: Rheumatoid arthritis
     Route: 058
  63. ENBREL [Suspect]
     Active Substance: ETANERCEPT
     Route: 058
  64. CHLORAPREP [Suspect]
     Active Substance: CHLORHEXIDINE GLUCONATE\ISOPROPYL ALCOHOL
     Indication: Product used for unknown indication
     Route: 061
  65. CHLORAPREP [Suspect]
     Active Substance: CHLORHEXIDINE GLUCONATE\ISOPROPYL ALCOHOL
     Dosage: UNK
     Route: 065
  66. CHLORAPREP [Suspect]
     Active Substance: CHLORHEXIDINE GLUCONATE\ISOPROPYL ALCOHOL
     Dosage: FORM: SOLUTION.
     Route: 061
  67. CHLORAPREP [Suspect]
     Active Substance: CHLORHEXIDINE GLUCONATE\ISOPROPYL ALCOHOL
  68. CHLORAPREP [Suspect]
     Active Substance: CHLORHEXIDINE GLUCONATE\ISOPROPYL ALCOHOL
     Route: 061
  69. CHLORAPREP [Suspect]
     Active Substance: CHLORHEXIDINE GLUCONATE\ISOPROPYL ALCOHOL
  70. ACTEMRA [Suspect]
     Active Substance: TOCILIZUMAB
     Indication: Rheumatoid arthritis
     Dosage: 7.52 MG
  71. ACTEMRA [Suspect]
     Active Substance: TOCILIZUMAB
     Dosage: UNK
     Route: 058
  72. ACTEMRA [Suspect]
     Active Substance: TOCILIZUMAB
     Dosage: UNK
  73. ACTEMRA [Suspect]
     Active Substance: TOCILIZUMAB
  74. ACTEMRA [Suspect]
     Active Substance: TOCILIZUMAB
  75. ACTEMRA [Suspect]
     Active Substance: TOCILIZUMAB
     Route: 058
  76. ORENCIA [Suspect]
     Active Substance: ABATACEPT
     Indication: Rheumatoid arthritis
     Route: 042
  77. ORENCIA [Suspect]
     Active Substance: ABATACEPT
  78. ACETAMINOPHEN\OXYCODONE HYDROCHLORIDE [Suspect]
     Active Substance: ACETAMINOPHEN\OXYCODONE HYDROCHLORIDE
  79. PHTHALYLSULFATHIAZOLE [Suspect]
     Active Substance: PHTHALYLSULFATHIAZOLE
     Indication: Rheumatoid arthritis
     Dosage: 500 MG
     Route: 048
  80. PHTHALYLSULFATHIAZOLE [Suspect]
     Active Substance: PHTHALYLSULFATHIAZOLE
     Dosage: 1000 MG, Q12H
     Route: 048
  81. PHTHALYLSULFATHIAZOLE [Suspect]
     Active Substance: PHTHALYLSULFATHIAZOLE
     Route: 048
  82. PHTHALYLSULFATHIAZOLE [Suspect]
     Active Substance: PHTHALYLSULFATHIAZOLE
     Route: 048
  83. REMICADE [Suspect]
     Active Substance: INFLIXIMAB
     Indication: Rheumatoid arthritis
     Dosage: POWDER FOR SOLUTION INTRAVENOUS
     Route: 042
  84. REMICADE [Suspect]
     Active Substance: INFLIXIMAB
  85. SIMPONI [Suspect]
     Active Substance: GOLIMUMAB
     Indication: Rheumatoid arthritis
     Route: 058
  86. SIMPONI [Suspect]
     Active Substance: GOLIMUMAB
     Route: 058
  87. ACETAMINOPHEN\OXYCODONE HYDROCHLORIDE [Suspect]
     Active Substance: ACETAMINOPHEN\OXYCODONE HYDROCHLORIDE
     Indication: Product used for unknown indication
     Dosage: ACETAMINOPHEN;OXYCODONE HYDROCHLORIDE
  88. XELJANZ [Suspect]
     Active Substance: TOFACITINIB CITRATE
     Indication: Product used for unknown indication
     Dosage: 10 MG
  89. XELJANZ [Suspect]
     Active Substance: TOFACITINIB CITRATE
     Dosage: 5 MG, BID
  90. XELJANZ [Suspect]
     Active Substance: TOFACITINIB CITRATE
  91. XELJANZ [Suspect]
     Active Substance: TOFACITINIB CITRATE
  92. PANTOPRAZOLE SODIUM [Concomitant]
     Active Substance: PANTOPRAZOLE SODIUM
  93. ZOPICLONE [Concomitant]
     Active Substance: ZOPICLONE
     Indication: Product used for unknown indication
  94. ZOPICLONE [Concomitant]
     Active Substance: ZOPICLONE
  95. TYLENOL [Concomitant]
     Active Substance: ACETAMINOPHEN
  96. ETHINYL ESTRADIOL [Concomitant]
     Active Substance: ETHINYL ESTRADIOL
     Indication: Product used for unknown indication
  97. ETHINYL ESTRADIOL [Concomitant]
     Active Substance: ETHINYL ESTRADIOL
  98. IBUPROFEN [Concomitant]
     Active Substance: IBUPROFEN
     Indication: Product used for unknown indication
  99. IBUPROFEN [Concomitant]
     Active Substance: IBUPROFEN
  100. MARVELON [Concomitant]
     Active Substance: DESOGESTREL\ETHINYL ESTRADIOL
     Indication: Product used for unknown indication
  101. MARVELON [Concomitant]
     Active Substance: DESOGESTREL\ETHINYL ESTRADIOL
  102. ACETAMINOPHEN [Concomitant]
     Active Substance: ACETAMINOPHEN
     Indication: Product used for unknown indication
  103. PANTOPRAZOLE SODIUM [Concomitant]
     Active Substance: PANTOPRAZOLE SODIUM
     Indication: Product used for unknown indication

REACTIONS (48)
  - Abdominal discomfort [Not Recovered/Not Resolved]
  - Alopecia [Not Recovered/Not Resolved]
  - Anti-cyclic citrullinated peptide antibody positive [Not Recovered/Not Resolved]
  - Arthropathy [Not Recovered/Not Resolved]
  - Blister [Not Recovered/Not Resolved]
  - Confusional state [Not Recovered/Not Resolved]
  - Contusion [Not Recovered/Not Resolved]
  - Discomfort [Not Recovered/Not Resolved]
  - Drug intolerance [Not Recovered/Not Resolved]
  - Duodenal ulcer perforation [Not Recovered/Not Resolved]
  - Dyspnoea [Not Recovered/Not Resolved]
  - Fatigue [Not Recovered/Not Resolved]
  - Gastrointestinal disorder [Not Recovered/Not Resolved]
  - Glossodynia [Not Recovered/Not Resolved]
  - Hand deformity [Not Recovered/Not Resolved]
  - Helicobacter infection [Not Recovered/Not Resolved]
  - Hepatic enzyme increased [Not Recovered/Not Resolved]
  - Impaired healing [Not Recovered/Not Resolved]
  - Infection [Not Recovered/Not Resolved]
  - Infusion related reaction [Not Recovered/Not Resolved]
  - Irritable bowel syndrome [Not Recovered/Not Resolved]
  - Joint swelling [Not Recovered/Not Resolved]
  - Lower respiratory tract infection [Not Recovered/Not Resolved]
  - Muscle injury [Not Recovered/Not Resolved]
  - Nasopharyngitis [Not Recovered/Not Resolved]
  - Pain [Not Recovered/Not Resolved]
  - Pemphigus [Not Recovered/Not Resolved]
  - Pericarditis [Not Recovered/Not Resolved]
  - Peripheral swelling [Not Recovered/Not Resolved]
  - Pyrexia [Not Recovered/Not Resolved]
  - Pruritus [Not Recovered/Not Resolved]
  - Rash [Not Recovered/Not Resolved]
  - Rheumatoid arthritis [Not Recovered/Not Resolved]
  - Sinusitis [Not Recovered/Not Resolved]
  - Sleep disorder due to general medical condition, insomnia type [Not Recovered/Not Resolved]
  - Stomatitis [Not Recovered/Not Resolved]
  - Swelling [Not Recovered/Not Resolved]
  - Synovitis [Not Recovered/Not Resolved]
  - Systemic lupus erythematosus [Not Recovered/Not Resolved]
  - Weight increased [Not Recovered/Not Resolved]
  - Wound [Not Recovered/Not Resolved]
  - Folliculitis [Not Recovered/Not Resolved]
  - Ill-defined disorder [Not Recovered/Not Resolved]
  - Hypersensitivity [Not Recovered/Not Resolved]
  - Maternal exposure during pregnancy [Unknown]
  - Drug ineffective [Unknown]
  - Therapeutic product effect decreased [Unknown]
  - Contraindicated product administered [Unknown]
